FAERS Safety Report 21598202 (Version 2)
Quarter: 2022Q4

REPORT INFORMATION
  Report Type: Spontaneous
  Country: IT (occurrence: IT)
  Receive Date: 20221115
  Receipt Date: 20221116
  Transmission Date: 20230113
  Serious: Yes (Other)
  Sender: FDA-Public Use
  Company Number: IT-002147023-NVSC2022IT250952

PATIENT
  Age: 70 Year
  Sex: Female

DRUGS (1)
  1. ETANERCEPT [Suspect]
     Active Substance: ETANERCEPT
     Indication: Polyarthritis
     Dosage: UNK UNK, UNKNOWN
     Route: 065
     Dates: start: 202204

REACTIONS (2)
  - Myasthenia gravis [Unknown]
  - Concomitant disease aggravated [Unknown]
